FAERS Safety Report 25049745 (Version 1)
Quarter: 2025Q1

REPORT INFORMATION
  Report Type: Spontaneous
  Country: IE (occurrence: IE)
  Receive Date: 20250307
  Receipt Date: 20250307
  Transmission Date: 20250409
  Serious: Yes (Hospitalization, Other)
  Sender: RANBAXY
  Company Number: IE-SUN PHARMACEUTICAL INDUSTRIES LTD-2025RR-498271

PATIENT
  Age: 9 Decade
  Sex: Male

DRUGS (1)
  1. ATORVASTATIN [Suspect]
     Active Substance: ATORVASTATIN
     Indication: Transient ischaemic attack
     Dosage: 20 MILLIGRAM, ONCE A DAY, DAILY
     Route: 065

REACTIONS (2)
  - Necrotising myositis [Recovering/Resolving]
  - Cardiac failure [Recovering/Resolving]
